FAERS Safety Report 7070082-X (Version None)
Quarter: 2010Q4

REPORT INFORMATION
  Report Type: 
  Country: None (occurrence: None)
  Receive Date: 20101028
  Receipt Date: 20100921
  Transmission Date: 20110411
  Serious: Yes (Other)
  Sender: FDA-Public Use
  Company Number: US-WYE-H17159010

PATIENT
  Sex: Female
  Weight: 61 kg

DRUGS (1)
  1. NORPLANT SYSTEM [Suspect]
     Indication: PRODUCT USED FOR UNKNOWN INDICATION
     Dosage: 6 CAPSULES
     Route: 058
     Dates: end: 20100903

REACTIONS (2)
  - BREAST CANCER [None]
  - INCORRECT DRUG ADMINISTRATION DURATION [None]
